FAERS Safety Report 13742029 (Version 1)
Quarter: 2017Q3

REPORT INFORMATION
  Report Type: Spontaneous
  Country: US (occurrence: US)
  Receive Date: 20170711
  Receipt Date: 20170711
  Transmission Date: 20171127
  Serious: Yes (Other)
  Sender: FDA-Public Use
  Company Number: US-TORRENT-00003168

PATIENT
  Age: 33 Year
  Sex: Female

DRUGS (4)
  1. TEMAZEPAM. [Interacting]
     Active Substance: TEMAZEPAM
  2. VENLAFAXINE [Interacting]
     Active Substance: VENLAFAXINE HYDROCHLORIDE
  3. SERTRALINE [Suspect]
     Active Substance: SERTRALINE HYDROCHLORIDE
  4. QUETIAPINE. [Interacting]
     Active Substance: QUETIAPINE

REACTIONS (12)
  - Mood swings [Recovered/Resolved]
  - Homicidal ideation [Recovered/Resolved]
  - Withdrawal syndrome [Recovered/Resolved]
  - Depressed mood [Recovered/Resolved]
  - Aggression [Recovered/Resolved]
  - Abnormal behaviour [Recovered/Resolved]
  - Toxicity to various agents [Recovered/Resolved]
  - Suicidal ideation [Recovered/Resolved]
  - Fatigue [Recovered/Resolved]
  - Drug interaction [Recovered/Resolved]
  - Panic attack [Recovered/Resolved]
  - Akathisia [Recovered/Resolved]
